FAERS Safety Report 9364119 (Version 1)
Quarter: 2013Q2

REPORT INFORMATION
  Report Type: Spontaneous
  Country: FR (occurrence: None)
  Receive Date: 20130618
  Receipt Date: 20130618
  Transmission Date: 20140414
  Serious: Yes (Other)
  Sender: FDA-Public Use
  Company Number: 1747066

PATIENT
  Age: 78 Year
  Sex: Female
  Weight: 49 kg

DRUGS (9)
  1. (CARBOPLATIN) [Suspect]
     Indication: MALIGNANT PALATE NEOPLASM
     Dosage: CYCLICAL??(NOT OTHERWISE SPECIFIED)
     Route: 042
     Dates: start: 20130403, end: 20130423
  2. PACLITAXEL [Suspect]
     Indication: MALIGNANT PALATE NEOPLASM
     Dosage: CYCLICAL??(NOT OTHERWISE SPECIFIED)
     Route: 042
     Dates: start: 20130403, end: 20130423
  3. (ALDACTAZINE) [Concomitant]
  4. (TENORMINE) [Concomitant]
  5. (ZYLORIC) [Concomitant]
  6. (EMEND /01627301/) [Concomitant]
  7. (ZOPHREN  /00955301/) [Concomitant]
  8. (SOLUMEDROL) [Concomitant]
  9. (NEULASTA) [Concomitant]

REACTIONS (7)
  - Face oedema [None]
  - Pruritus [None]
  - Oedema peripheral [None]
  - Inflammation [None]
  - Feeling hot [None]
  - Eyelid oedema [None]
  - Drug hypersensitivity [None]
